FAERS Safety Report 12270421 (Version 3)
Quarter: 2016Q2

REPORT INFORMATION
  Report Type: Report from Study
  Country: CA (occurrence: CA)
  Receive Date: 20160415
  Receipt Date: 20160421
  Transmission Date: 20160815
  Serious: Yes (Other)
  Sender: FDA-Public Use
  Company Number: CA-ROCHE-1125352

PATIENT
  Age: 48 Year
  Sex: Female
  Weight: 62 kg

DRUGS (26)
  1. ACETAMINOPHEN. [Concomitant]
     Active Substance: ACETAMINOPHEN
     Route: 065
  2. ACTEMRA [Suspect]
     Active Substance: TOCILIZUMAB
     Dosage: (DOSE CONTD. AS 8MG/KG)
     Route: 042
     Dates: start: 20121015
  3. METHOTREXATE [Suspect]
     Active Substance: METHOTREXATE
     Indication: PRODUCT USED FOR UNKNOWN INDICATION
     Route: 065
  4. ACTEMRA [Suspect]
     Active Substance: TOCILIZUMAB
     Indication: RHEUMATOID ARTHRITIS
     Route: 042
     Dates: start: 20120719
  5. ACTEMRA [Suspect]
     Active Substance: TOCILIZUMAB
     Route: 042
     Dates: start: 20120802
  6. ACTEMRA [Suspect]
     Active Substance: TOCILIZUMAB
     Route: 058
  7. BENADRYL [Suspect]
     Active Substance: DIPHENHYDRAMINE HYDROCHLORIDE
     Route: 042
     Dates: start: 20130108
  8. NEURONTIN [Concomitant]
     Active Substance: GABAPENTIN
  9. ACTEMRA [Suspect]
     Active Substance: TOCILIZUMAB
     Route: 042
     Dates: start: 20120724
  10. ACTEMRA [Suspect]
     Active Substance: TOCILIZUMAB
     Route: 042
     Dates: start: 20140930
  11. ACTEMRA [Suspect]
     Active Substance: TOCILIZUMAB
     Indication: RHEUMATOID ARTHRITIS
     Route: 058
     Dates: start: 20151006
  12. ACTEMRA [Suspect]
     Active Substance: TOCILIZUMAB
     Route: 042
     Dates: start: 20120918
  13. ACTEMRA [Suspect]
     Active Substance: TOCILIZUMAB
     Route: 042
  14. ALPRAZOLAM. [Concomitant]
     Active Substance: ALPRAZOLAM
     Route: 065
  15. PREDNISONE. [Concomitant]
     Active Substance: PREDNISONE
  16. DOCUSATE [Concomitant]
     Active Substance: DOCUSATE
     Dosage: 100
     Route: 065
  17. NICORETTE [Concomitant]
     Active Substance: NICOTINE
     Route: 065
  18. ACTEMRA [Suspect]
     Active Substance: TOCILIZUMAB
     Route: 042
     Dates: start: 20121112
  19. BENADRYL [Suspect]
     Active Substance: DIPHENHYDRAMINE HYDROCHLORIDE
     Indication: PREMEDICATION
     Route: 042
     Dates: start: 20120724
  20. FOLIC ACID. [Concomitant]
     Active Substance: FOLIC ACID
  21. TRAZODONE [Concomitant]
     Active Substance: TRAZODONE HYDROCHLORIDE
     Route: 065
  22. HYDROMORPHONE [Concomitant]
     Active Substance: HYDROMORPHONE
     Route: 065
  23. NASONEX [Concomitant]
     Active Substance: MOMETASONE FUROATE
     Route: 045
  24. TRAMADOL. [Concomitant]
     Active Substance: TRAMADOL
  25. ACTEMRA [Suspect]
     Active Substance: TOCILIZUMAB
     Route: 042
     Dates: start: 20121224
  26. BENADRYL [Suspect]
     Active Substance: DIPHENHYDRAMINE HYDROCHLORIDE
     Route: 042
     Dates: start: 20130205

REACTIONS (23)
  - Hypersensitivity [Not Recovered/Not Resolved]
  - Nasopharyngitis [Not Recovered/Not Resolved]
  - Wound [Unknown]
  - Therapeutic response decreased [Not Recovered/Not Resolved]
  - Drug ineffective [Unknown]
  - Fall [Unknown]
  - Infusion related reaction [Unknown]
  - Arthralgia [Not Recovered/Not Resolved]
  - Skin abrasion [Not Recovered/Not Resolved]
  - Erythema [Unknown]
  - Urticaria [Recovered/Resolved]
  - Pruritus generalised [Recovered/Resolved]
  - Somnolence [Not Recovered/Not Resolved]
  - Hypotension [Unknown]
  - Laceration [Not Recovered/Not Resolved]
  - Breast pain [Not Recovered/Not Resolved]
  - Hepatic enzyme increased [Unknown]
  - Disorientation [Not Recovered/Not Resolved]
  - Oropharyngeal pain [Not Recovered/Not Resolved]
  - Cough [Not Recovered/Not Resolved]
  - Alopecia [Unknown]
  - Bronchitis [Recovered/Resolved]
  - Therapy responder [Unknown]

NARRATIVE: CASE EVENT DATE: 20120719
